FAERS Safety Report 6198366-8 (Version None)
Quarter: 2009Q2

REPORT INFORMATION
  Report Type: 
  Country: None (occurrence: None)
  Receive Date: 20090519
  Receipt Date: 20090506
  Transmission Date: 20091009
  Serious: Yes (Hospitalization)
  Sender: FDA-Public Use
  Company Number: 233550K09USA

PATIENT
  Age: 40 Year
  Sex: Female
  Weight: 64 kg

DRUGS (7)
  1. REBIF [Suspect]
     Indication: MULTIPLE SCLEROSIS
     Dosage: 22 MCG, 3 IN 1 WEEKS, SUBCUTANEOUS
     Route: 058
     Dates: start: 20040909
  2. TEGRETOL [Concomitant]
  3. PENTASA [Concomitant]
  4. REGLAN [Concomitant]
  5. ZANTAC 150 [Concomitant]
  6. ATIVAN [Concomitant]
  7. TYLENOL (COTYLENOL) [Concomitant]

REACTIONS (3)
  - ENDOMETRIAL HYPERPLASIA [None]
  - POSTMENOPAUSAL HAEMORRHAGE [None]
  - VOMITING [None]
